FAERS Safety Report 10196080 (Version 1)
Quarter: 2014Q2

REPORT INFORMATION
  Report Type: Spontaneous
  Country: US (occurrence: US)
  Receive Date: 20140527
  Receipt Date: 20140527
  Transmission Date: 20141212
  Serious: No
  Sender: FDA-Public Use
  Company Number: US-PFIZER INC-2014140554

PATIENT
  Sex: Female

DRUGS (2)
  1. LYRICA [Suspect]
     Dosage: 50 MG, UNK (PERIODICALLY OR OFTEN)
     Dates: end: 201404
  2. LYRICA [Suspect]
     Dosage: TOOK TWO 50MG TOGETHER, UNK

REACTIONS (7)
  - Euphoric mood [Unknown]
  - Feeling abnormal [Unknown]
  - Balance disorder [Unknown]
  - Nausea [Unknown]
  - Drug ineffective [Unknown]
  - Pain [Unknown]
  - Musculoskeletal stiffness [Unknown]
